FAERS Safety Report 7408930-3 (Version None)
Quarter: 2011Q2

REPORT INFORMATION
  Report Type: 
  Country: None (occurrence: None)
  Receive Date: 20110412
  Receipt Date: 20110404
  Transmission Date: 20111010
  Serious: Yes (Death)
  Sender: FDA-Public Use
  Company Number: GR-GILEAD-2011-0038206

PATIENT
  Age: 73 Year
  Sex: Male

DRUGS (7)
  1. CLOPIDOGREL [Concomitant]
  2. IMDUR [Concomitant]
  3. VASTAREL [Concomitant]
  4. RANEXA [Suspect]
     Indication: PRODUCT USED FOR UNKNOWN INDICATION
     Dates: start: 20110201
  5. SALOSPIR [Concomitant]
  6. OMEPRAZOLE [Suspect]
  7. CARVEDILOL [Concomitant]

REACTIONS (1)
  - SUDDEN DEATH [None]
